FAERS Safety Report 9698914 (Version 2)
Quarter: 2014Q1

REPORT INFORMATION
  Report Type: Spontaneous
  Country: US (occurrence: US)
  Receive Date: 20131120
  Receipt Date: 20140115
  Transmission Date: 20141002
  Serious: Yes (Death, Life-Threatening)
  Sender: FDA-Public Use
  Company Number: US-BRISTOL-MYERS SQUIBB COMPANY-19801703

PATIENT
  Age: 83 Year
  Sex: Male
  Weight: 96.6 kg

DRUGS (13)
  1. ELIQUIS [Suspect]
     Indication: ATRIAL FIBRILLATION
     Dosage: TABS
     Route: 048
     Dates: start: 20130725
  2. ELIQUIS [Suspect]
     Indication: THROMBOSIS
     Dosage: TABS
     Route: 048
     Dates: start: 20130725
  3. ASPIRIN [Suspect]
  4. COLACE [Concomitant]
     Dosage: CAPS
     Route: 048
     Dates: start: 20121115
  5. DIPHENHYDRAMINE HCL [Concomitant]
     Route: 048
     Dates: start: 20120222
  6. KLOR-CON M [Concomitant]
     Dosage: M20
     Route: 048
     Dates: start: 20130423
  7. LANOXIN [Concomitant]
     Route: 048
     Dates: start: 20120601
  8. METOCLOPRAMIDE HCL [Concomitant]
     Indication: NAUSEA
     Dosage: TABS
     Route: 048
     Dates: start: 20130711
  9. SPIRIVA [Concomitant]
     Dosage: 1 PUFF
     Route: 048
     Dates: start: 20130423
  10. SYMBICORT [Concomitant]
     Dosage: 1 DF= 160 MCG-4.5 MCG/ACTUATION?2 PUFF
     Route: 048
     Dates: start: 20130423
  11. ALDACTONE [Concomitant]
     Dosage: TAB
     Route: 048
     Dates: start: 20130911
  12. LASIX [Concomitant]
     Dosage: TAB
     Route: 048
  13. SOTALOL [Concomitant]
     Dosage: TAB
     Route: 048
     Dates: start: 20130801

REACTIONS (2)
  - Oesophageal varices haemorrhage [Fatal]
  - Cerebrovascular accident [Fatal]
